FAERS Safety Report 10434696 (Version 3)
Quarter: 2014Q4

REPORT INFORMATION
  Report Type: Spontaneous
  Country: US (occurrence: US)
  Receive Date: 20140906
  Receipt Date: 20141021
  Transmission Date: 20150528
  Serious: Yes (Other)
  Sender: FDA-Public Use
  Company Number: US-009507513-1409USA002100

PATIENT
  Age: 25 Year
  Sex: Female
  Weight: 78.5 kg

DRUGS (1)
  1. IMPLANON [Suspect]
     Active Substance: ETONOGESTREL
     Indication: CONTRACEPTION
     Dosage: UNK
     Route: 059

REACTIONS (4)
  - Medical device removal [Recovered/Resolved]
  - Vaginal haemorrhage [Recovered/Resolved]
  - Incorrect drug administration duration [Unknown]
  - Breast tenderness [Recovered/Resolved]

NARRATIVE: CASE EVENT DATE: 201309
